FAERS Safety Report 8118270-5 (Version None)
Quarter: 2012Q1

REPORT INFORMATION
  Report Type: 
  Country: None (occurrence: None)
  Receive Date: 20120207
  Receipt Date: 20120130
  Transmission Date: 20120608
  Serious: No
  Sender: FDA-Public Use
  Company Number: JP-ASTELLAS-2012JP000383

PATIENT
  Sex: Female
  Weight: 69 kg

DRUGS (3)
  1. VESICARE [Suspect]
     Indication: HYPERTONIC BLADDER
     Dosage: 5 MG, UID/QD
     Route: 048
     Dates: start: 20111224, end: 20120112
  2. CANDESARTAN CILEXETIL [Concomitant]
     Indication: HYPERTENSION
     Dosage: 4 MG, UID/QD
     Route: 048
     Dates: start: 20111224
  3. KAMISHOUYOUSAN [Concomitant]
     Dosage: UNK
     Route: 048

REACTIONS (1)
  - EYELID OEDEMA [None]
